FAERS Safety Report 16429627 (Version 1)
Quarter: 2019Q2

REPORT INFORMATION
  Report Type: Spontaneous
  Country: US (occurrence: US)
  Receive Date: 20190614
  Receipt Date: 20190614
  Transmission Date: 20190711
  Serious: Yes (Other)
  Sender: FDA-Public Use
  Company Number: US-APOTEX-2019AP016167

PATIENT
  Age: 66 Year
  Sex: Female

DRUGS (6)
  1. CLONAZEPAM. [Suspect]
     Active Substance: CLONAZEPAM
     Indication: SLEEP APNOEA SYNDROME
     Dosage: UNK
     Route: 065
  2. CLONAZEPAM. [Suspect]
     Active Substance: CLONAZEPAM
     Indication: CONTINUOUS POSITIVE AIRWAY PRESSURE
  3. MELATONIN [Concomitant]
     Active Substance: MELATONIN
     Indication: RAPID EYE MOVEMENT SLEEP BEHAVIOUR DISORDER
  4. MELATONIN [Concomitant]
     Active Substance: MELATONIN
     Indication: SLEEP APNOEA SYNDROME
  5. MELATONIN [Concomitant]
     Active Substance: MELATONIN
     Indication: CONTINUOUS POSITIVE AIRWAY PRESSURE
     Dosage: UNK
     Route: 065
  6. CLONAZEPAM. [Suspect]
     Active Substance: CLONAZEPAM
     Indication: RAPID EYE MOVEMENT SLEEP BEHAVIOUR DISORDER
     Dosage: UNK
     Route: 065

REACTIONS (3)
  - Condition aggravated [Unknown]
  - Somnolence [Unknown]
  - Sleep apnoea syndrome [Unknown]
